FAERS Safety Report 25493195 (Version 3)
Quarter: 2025Q3

REPORT INFORMATION
  Report Type: Report from Study
  Country: KR (occurrence: KR)
  Receive Date: 20250630
  Receipt Date: 20250904
  Transmission Date: 20251021
  Serious: Yes (Other)
  Sender: ASTELLAS
  Company Number: KR-ASTELLAS-2025-AER-034417

PATIENT
  Age: 63 Year
  Sex: Male
  Weight: 53 kg

DRUGS (52)
  1. ENFORTUMAB VEDOTIN-EJFV [Suspect]
     Active Substance: ENFORTUMAB VEDOTIN-EJFV
     Indication: Transitional cell carcinoma metastatic
     Route: 065
     Dates: start: 20240605
  2. ENFORTUMAB VEDOTIN-EJFV [Suspect]
     Active Substance: ENFORTUMAB VEDOTIN-EJFV
     Route: 065
     Dates: start: 20240612
  3. ENFORTUMAB VEDOTIN-EJFV [Suspect]
     Active Substance: ENFORTUMAB VEDOTIN-EJFV
     Route: 065
     Dates: start: 20240619
  4. ENFORTUMAB VEDOTIN-EJFV [Suspect]
     Active Substance: ENFORTUMAB VEDOTIN-EJFV
     Route: 065
     Dates: start: 20240703
  5. ENFORTUMAB VEDOTIN-EJFV [Suspect]
     Active Substance: ENFORTUMAB VEDOTIN-EJFV
     Route: 065
     Dates: start: 20240710
  6. ENFORTUMAB VEDOTIN-EJFV [Suspect]
     Active Substance: ENFORTUMAB VEDOTIN-EJFV
     Route: 065
     Dates: start: 20240717
  7. ENFORTUMAB VEDOTIN-EJFV [Suspect]
     Active Substance: ENFORTUMAB VEDOTIN-EJFV
     Route: 065
     Dates: start: 20240813
  8. ENFORTUMAB VEDOTIN-EJFV [Suspect]
     Active Substance: ENFORTUMAB VEDOTIN-EJFV
     Route: 065
     Dates: start: 20240822
  9. ENFORTUMAB VEDOTIN-EJFV [Suspect]
     Active Substance: ENFORTUMAB VEDOTIN-EJFV
     Route: 065
     Dates: start: 20240829
  10. ENFORTUMAB VEDOTIN-EJFV [Suspect]
     Active Substance: ENFORTUMAB VEDOTIN-EJFV
     Route: 065
     Dates: start: 20240912
  11. ENFORTUMAB VEDOTIN-EJFV [Suspect]
     Active Substance: ENFORTUMAB VEDOTIN-EJFV
     Route: 065
     Dates: start: 20240920
  12. ENFORTUMAB VEDOTIN-EJFV [Suspect]
     Active Substance: ENFORTUMAB VEDOTIN-EJFV
     Route: 065
     Dates: start: 20240930
  13. ENFORTUMAB VEDOTIN-EJFV [Suspect]
     Active Substance: ENFORTUMAB VEDOTIN-EJFV
     Route: 065
     Dates: start: 20241017
  14. ENFORTUMAB VEDOTIN-EJFV [Suspect]
     Active Substance: ENFORTUMAB VEDOTIN-EJFV
     Route: 065
     Dates: start: 20241024
  15. ENFORTUMAB VEDOTIN-EJFV [Suspect]
     Active Substance: ENFORTUMAB VEDOTIN-EJFV
     Route: 065
     Dates: start: 20241031
  16. ENFORTUMAB VEDOTIN-EJFV [Suspect]
     Active Substance: ENFORTUMAB VEDOTIN-EJFV
     Route: 065
     Dates: start: 20241114
  17. ENFORTUMAB VEDOTIN-EJFV [Suspect]
     Active Substance: ENFORTUMAB VEDOTIN-EJFV
     Route: 065
     Dates: start: 20241212
  18. ENFORTUMAB VEDOTIN-EJFV [Suspect]
     Active Substance: ENFORTUMAB VEDOTIN-EJFV
     Route: 065
     Dates: start: 20241219
  19. ENFORTUMAB VEDOTIN-EJFV [Suspect]
     Active Substance: ENFORTUMAB VEDOTIN-EJFV
     Route: 065
     Dates: start: 20250113
  20. ENFORTUMAB VEDOTIN-EJFV [Suspect]
     Active Substance: ENFORTUMAB VEDOTIN-EJFV
     Route: 065
     Dates: start: 20250127
  21. ENFORTUMAB VEDOTIN-EJFV [Suspect]
     Active Substance: ENFORTUMAB VEDOTIN-EJFV
     Route: 065
     Dates: start: 20250210
  22. ENFORTUMAB VEDOTIN-EJFV [Suspect]
     Active Substance: ENFORTUMAB VEDOTIN-EJFV
     Route: 065
     Dates: start: 20250225
  23. ENFORTUMAB VEDOTIN-EJFV [Suspect]
     Active Substance: ENFORTUMAB VEDOTIN-EJFV
     Route: 065
     Dates: start: 20250313
  24. ENFORTUMAB VEDOTIN-EJFV [Suspect]
     Active Substance: ENFORTUMAB VEDOTIN-EJFV
     Route: 065
     Dates: start: 20250327
  25. ENFORTUMAB VEDOTIN-EJFV [Suspect]
     Active Substance: ENFORTUMAB VEDOTIN-EJFV
     Route: 065
     Dates: start: 20250410, end: 20250410
  26. HARNAL [Concomitant]
     Active Substance: TAMSULOSIN HYDROCHLORIDE
     Indication: Prophylaxis
     Dosage: HARNAL D?ONGOING
     Route: 048
     Dates: start: 20240530
  27. DULACKHAN EASY [Concomitant]
     Indication: Constipation prophylaxis
     Route: 048
     Dates: start: 20240530, end: 20240629
  28. ERDOSTEINE [Concomitant]
     Active Substance: ERDOSTEINE
     Indication: Prophylaxis
     Route: 048
     Dates: start: 20240530, end: 20250110
  29. FEROBA YOU SR [Concomitant]
     Indication: Prophylaxis
     Route: 048
     Dates: start: 20240530, end: 20250110
  30. MAGNESIUM OXIDE [Concomitant]
     Active Substance: MAGNESIUM OXIDE
     Indication: Constipation prophylaxis
     Route: 048
     Dates: start: 20240530, end: 20240905
  31. MULEX [Concomitant]
     Indication: Hypotonia
     Route: 048
     Dates: start: 20240530, end: 20250110
  32. MYTONIN [BENZYDAMINE HYDROCHLORIDE] [Concomitant]
     Indication: Prophylaxis
     Route: 048
     Dates: start: 20240530, end: 20250110
  33. PHAZYME [AMYLASE;LIPASE;PROTEASE NOS;SIMETICONE] [Concomitant]
     Indication: Prophylaxis
     Route: 048
     Dates: start: 20240530, end: 20250110
  34. ULTRACET [Concomitant]
     Active Substance: ACETAMINOPHEN\TRAMADOL HYDROCHLORIDE
     Indication: Cancer pain
     Route: 048
     Dates: start: 20240530, end: 20240723
  35. ZYPREXA [Concomitant]
     Active Substance: OLANZAPINE
     Indication: Prophylaxis
     Route: 048
     Dates: start: 20240530, end: 20240629
  36. FENTANYL [Concomitant]
     Active Substance: FENTANYL
     Indication: Cancer pain
     Route: 061
     Dates: start: 20240530, end: 20240626
  37. FENTANYL [Concomitant]
     Active Substance: FENTANYL
     Route: 061
     Dates: start: 20240530, end: 20240608
  38. FENTANYL [Concomitant]
     Active Substance: FENTANYL
     Dosage: 50MCG/H
     Route: 061
     Dates: start: 20240703, end: 20240710
  39. FENTANYL [Concomitant]
     Active Substance: FENTANYL
     Route: 061
     Dates: start: 20240724
  40. FENTANYL [Concomitant]
     Active Substance: FENTANYL
     Route: 061
     Dates: start: 20240724
  41. FENTORA [Concomitant]
     Active Substance: FENTANYL CITRATE
     Indication: Cancer pain
     Dosage: 200 MCG
     Route: 048
     Dates: start: 20240604, end: 20240618
  42. FENTORA [Concomitant]
     Active Substance: FENTANYL CITRATE
     Dosage: 400 MCG
     Route: 048
     Dates: start: 20240724, end: 20241212
  43. FREAMINE III NOS [Concomitant]
     Active Substance: AMINO ACIDS
     Indication: Nutritional supplementation
     Route: 042
     Dates: start: 20240807, end: 20240812
  44. BC MORPHINE SULFATE [Concomitant]
     Indication: Cancer pain
     Route: 042
     Dates: start: 20240807, end: 20240807
  45. MORPHINE SULFATE [Concomitant]
     Active Substance: MORPHINE SULFATE
     Indication: Cancer pain
     Route: 042
     Dates: start: 20240807, end: 20240812
  46. TRAST [Concomitant]
     Indication: Cancer pain
     Route: 061
     Dates: start: 20240829, end: 20241007
  47. TEGOPRAZAN [Concomitant]
     Active Substance: TEGOPRAZAN
     Indication: Prophylaxis
     Route: 048
     Dates: start: 20241024, end: 20241031
  48. MEPERIDINE HYDROCHLORIDE [Concomitant]
     Active Substance: MEPERIDINE HYDROCHLORIDE
     Indication: Premedication
     Route: 042
     Dates: start: 20241105, end: 20241105
  49. MELATONIN [Concomitant]
     Active Substance: MELATONIN
     Indication: Prophylaxis
     Route: 048
     Dates: start: 20241212, end: 20241219
  50. VASCAM [Concomitant]
     Indication: Claustrophobia
     Route: 042
     Dates: start: 20241224, end: 20241224
  51. VASCAM [Concomitant]
     Route: 042
     Dates: start: 20241010, end: 20241010
  52. ACETYLCYSTEINE [Concomitant]
     Active Substance: ACETYLCYSTEINE
     Indication: Prophylaxis
     Route: 048
     Dates: start: 20250127, end: 20250210

REACTIONS (7)
  - Clostridium difficile colitis [Recovered/Resolved]
  - Hypokalaemia [Recovered/Resolved]
  - Iron deficiency anaemia [Recovering/Resolving]
  - Pruritus [Recovering/Resolving]
  - Dysphonia [Recovering/Resolving]
  - Pyrexia [Recovered/Resolved]
  - Urinary tract infection [Recovered/Resolved]

NARRATIVE: CASE EVENT DATE: 20240703
